FAERS Safety Report 8245885-6 (Version None)
Quarter: 2012Q1

REPORT INFORMATION
  Report Type: 
  Country: None (occurrence: None)
  Receive Date: 20120328
  Receipt Date: 20120328
  Transmission Date: 20120608
  Serious: Yes (Hospitalization)
  Sender: FDA-Public Use
  Company Number: None

PATIENT
  Age: 63 Year
  Sex: Male
  Weight: 95 kg

DRUGS (15)
  1. FENTANYL [Concomitant]
  2. HYDROMORPHONE HCL [Concomitant]
  3. MAGNESIUM SULFATE [Concomitant]
  4. ALTEPLASE [Concomitant]
  5. FLUCONAZOLE [Concomitant]
  6. HEPARIN [Concomitant]
  7. HYDROXYCHLOROQUINE SULFATE [Suspect]
     Dosage: 600MG PO BID
     Route: 048
     Dates: start: 20120102, end: 20120201
  8. FAT EMULSION [Concomitant]
  9. REGULAR INSULIN [Concomitant]
  10. PANTOPRAZOLE [Concomitant]
  11. TUBERCULIN NOS [Concomitant]
  12. GEMCITABINE [Suspect]
     Dosage: 1500MG/M2 IV X 2
     Route: 042
     Dates: start: 20120104
  13. GEMCITABINE [Suspect]
     Dosage: 1500MG/M2 IV X 2
     Route: 042
     Dates: start: 20120118
  14. ONDANSETRON [Concomitant]
  15. PIPERACILLIN AND TAZOBACTAM [Concomitant]

REACTIONS (3)
  - GASTRIC PERFORATION [None]
  - POST PROCEDURAL COMPLICATION [None]
  - SEPSIS [None]
